FAERS Safety Report 13549879 (Version 2)
Quarter: 2017Q4

REPORT INFORMATION
  Report Type: Report from Study
  Country: CO (occurrence: CO)
  Receive Date: 20170516
  Receipt Date: 20171130
  Transmission Date: 20180320
  Serious: Yes (Other)
  Sender: FDA-Public Use
  Company Number: CO-REGENERON PHARMACEUTICALS, INC.-2017-15609

PATIENT

DRUGS (2)
  1. INSULIN [Concomitant]
     Active Substance: INSULIN NOS
  2. EYLEA [Suspect]
     Active Substance: AFLIBERCEPT
     Indication: DIABETIC RETINAL OEDEMA
     Dosage: 2 MG; TOTAL OF 14 INJECTION IN THE LEFT EYE AND 3 IN RIGHT EYE
     Dates: start: 20151118, end: 20161223

REACTIONS (2)
  - Arterial occlusive disease [Unknown]
  - Cataract [Recovering/Resolving]
